FAERS Safety Report 5878405-1 (Version None)
Quarter: 2008Q3

REPORT INFORMATION
  Report Type: 
  Country: None (occurrence: None)
  Receive Date: 20080911
  Receipt Date: 20080903
  Transmission Date: 20090109
  Serious: Yes (Disabling, Other)
  Sender: FDA-Public Use
  Company Number: IE-PFIZER INC-2008053524

PATIENT
  Age: 44 Year
  Sex: Male

DRUGS (3)
  1. GEODON [Suspect]
     Indication: ALCOHOLIC PSYCHOSIS
     Route: 048
  2. PRAVASTATIN [Interacting]
     Indication: BLOOD CHOLESTEROL INCREASED
     Route: 048
  3. METFORMIN HCL [Concomitant]

REACTIONS (2)
  - DRUG INTERACTION [None]
  - EXTRAPYRAMIDAL DISORDER [None]
